FAERS Safety Report 4287056-4 (Version None)
Quarter: 2004Q1

REPORT INFORMATION
  Report Type: 
  Country: None (occurrence: None)
  Receive Date: 20040121
  Receipt Date: 20030703
  Transmission Date: 20041129
  Serious: Yes (Hospitalization)
  Sender: FDA-Public Use
  Company Number: A03200301501

PATIENT
  Sex: Female

DRUGS (1)
  1. PLAVIX [Suspect]
     Dates: start: 20020101

REACTIONS (2)
  - DYSPNOEA [None]
  - URTICARIA [None]
